FAERS Safety Report 8513759-9 (Version None)
Quarter: 2012Q3

REPORT INFORMATION
  Report Type: 
  Country: None (occurrence: None)
  Receive Date: 20120705
  Receipt Date: 20120621
  Transmission Date: 20120928
  Serious: Yes (Hospitalization, Other)
  Sender: FDA-Public Use
  Company Number: 2012-000515

PATIENT
  Age: 52 Year
  Sex: Female

DRUGS (9)
  1. LIPITOR [Concomitant]
  2. ACTONEL [Suspect]
     Indication: OSTEOPOROSIS
     Dosage: 35 MG ONCE WEEKLY, ORAL
     Route: 048
     Dates: start: 20050901, end: 20060501
  3. BONIVA [Suspect]
     Indication: OSTEOPOROSIS
     Dosage: 150 MG ONCE MONTHLY, ORAL
     Route: 048
     Dates: start: 20060601, end: 20080501
  4. FOSAMAX [Suspect]
     Indication: OSTEOPOROSIS
     Dosage: ORAL
  5. CLOTRIMAZOLE [Concomitant]
  6. CRESTOR [Concomitant]
  7. PREVACID [Concomitant]
  8. MULTIVITAMIN /00097801/ (ASCORBIC ACID, CALCIUM PANTOTHENATE, ERGOCALC [Concomitant]
  9. PRILOSEC [Concomitant]

REACTIONS (12)
  - BACK PAIN [None]
  - GREENSTICK FRACTURE [None]
  - VITAMIN D DECREASED [None]
  - FEMUR FRACTURE [None]
  - GAIT DISTURBANCE [None]
  - PROCEDURAL PAIN [None]
  - PATHOLOGICAL FRACTURE [None]
  - FALL [None]
  - ARTHRALGIA [None]
  - GASTROOESOPHAGEAL REFLUX DISEASE [None]
  - FRACTURE NONUNION [None]
  - LIGAMENT SPRAIN [None]
